FAERS Safety Report 25773679 (Version 1)
Quarter: 2025Q3

REPORT INFORMATION
  Report Type: Spontaneous
  Country: US (occurrence: None)
  Receive Date: 20250906
  Receipt Date: 20250906
  Transmission Date: 20251021
  Serious: Yes (Other)
  Sender: FDA-CTU
  Company Number: None

PATIENT
  Age: 50 Year
  Sex: Female
  Weight: 95.4 kg

DRUGS (10)
  1. OZEMPIC [Suspect]
     Active Substance: SEMAGLUTIDE
     Indication: Glucose tolerance impaired
     Route: 058
  2. OZEMPIC [Suspect]
     Active Substance: SEMAGLUTIDE
     Indication: Obesity
  3. PRILOSEC [Concomitant]
     Active Substance: OMEPRAZOLE MAGNESIUM
  4. PRAVASTATIN [Concomitant]
     Active Substance: PRAVASTATIN
  5. fisg oil [Concomitant]
  6. IRON [Concomitant]
     Active Substance: IRON
  7. ATIVAN [Concomitant]
     Active Substance: LORAZEPAM
  8. iron gummies [Concomitant]
  9. MIRALAX [Concomitant]
     Active Substance: POLYETHYLENE GLYCOL 3350
  10. ZOFRAN [Suspect]
     Active Substance: ONDANSETRON HYDROCHLORIDE

REACTIONS (3)
  - Panic attack [None]
  - Anxiety [None]
  - Major depression [None]

NARRATIVE: CASE EVENT DATE: 20250816
